FAERS Safety Report 15297459 (Version 1)
Quarter: 2018Q3

REPORT INFORMATION
  Report Type: Report from Study
  Country: AR (occurrence: AR)
  Receive Date: 20180820
  Receipt Date: 20180820
  Transmission Date: 20181010
  Serious: Yes (Hospitalization)
  Sender: FDA-Public Use
  Company Number: AR-FERRINGPH-2018FE04425

PATIENT

DRUGS (1)
  1. DEGARELIX [Suspect]
     Active Substance: DEGARELIX
     Indication: PROSTATE CANCER
     Dosage: 80 MG, UNK
     Route: 058
     Dates: start: 201704

REACTIONS (5)
  - Chest pain [Unknown]
  - Tremor [Unknown]
  - Feeling cold [Unknown]
  - Injection site pain [Unknown]
  - Muscle tightness [Unknown]

NARRATIVE: CASE EVENT DATE: 20180801
